FAERS Safety Report 18649231 (Version 1)
Quarter: 2020Q4

REPORT INFORMATION
  Report Type: Spontaneous
  Country: DE (occurrence: DE)
  Receive Date: 20201222
  Receipt Date: 20201222
  Transmission Date: 20210114
  Serious: Yes (Other)
  Sender: FDA-Public Use
  Company Number: DE-IGSA-BIG0012398

PATIENT
  Sex: Male
  Weight: 73 kg

DRUGS (4)
  1. SPIRIVA [Concomitant]
     Active Substance: TIOTROPIUM BROMIDE MONOHYDRATE
     Dosage: UNK UNKNOWN, UNKNOWN
  2. ATMADISC [Concomitant]
     Active Substance: FLUTICASONE PROPIONATE\SALMETEROL XINAFOATE
     Dosage: UNK UNKNOWN, UNKNOWN
  3. PROLASTIN [Suspect]
     Active Substance: .ALPHA.1-PROTEINASE INHIBITOR HUMAN
     Indication: ALPHA-1 ANTITRYPSIN DEFICIENCY
     Dosage: 5000 MILLIGRAM, Q.WK.
     Route: 042
     Dates: start: 200906
  4. NACL [Concomitant]
     Active Substance: SODIUM CHLORIDE
     Dosage: UNK UNKNOWN, UNKNOWN

REACTIONS (7)
  - Toothache [Unknown]
  - Paralysis [Unknown]
  - Head discomfort [Unknown]
  - Weight increased [Unknown]
  - Weight decreased [Unknown]
  - Headache [Unknown]
  - Pain in jaw [Unknown]

NARRATIVE: CASE EVENT DATE: 2012
